FAERS Safety Report 8075482-7 (Version None)
Quarter: 2012Q1

REPORT INFORMATION
  Report Type: 
  Country: None (occurrence: None)
  Receive Date: 20120127
  Receipt Date: 20120119
  Transmission Date: 20120608
  Serious: Yes (Hospitalization, Other)
  Sender: FDA-Public Use
  Company Number: US-BAYER-2011-055317

PATIENT
  Age: 43 Year
  Sex: Female

DRUGS (15)
  1. ANTI-ASTHMATICS [Concomitant]
  2. ANTIBIOTICS [Concomitant]
  3. NSAID'S [Concomitant]
  4. THYROID PREPARATIONS [Concomitant]
  5. SIMVASTATIN [Concomitant]
     Indication: BLOOD CHOLESTEROL INCREASED
  6. AMITIZA [Concomitant]
  7. YASMIN [Suspect]
     Indication: HORMONE THERAPY
     Dosage: UNK
     Dates: start: 20030101, end: 20080101
  8. LIPITOR [Concomitant]
  9. LEVOTHYROXINE SODIUM [Concomitant]
     Indication: BLOOD THYROID STIMULATING HORMONE DECREASED
  10. CHLORDIAZEPOXIDE W/CLIDINIUM [Concomitant]
  11. ASCORBIC ACID [Concomitant]
  12. FLONASE [Concomitant]
  13. PROCHLORPERAZINE [Concomitant]
     Indication: NAUSEA
  14. MIRALAX [Concomitant]
  15. LEVOXYL [Concomitant]

REACTIONS (5)
  - BILIARY DYSKINESIA [None]
  - CHOLECYSTITIS CHRONIC [None]
  - PAIN [None]
  - INJURY [None]
  - CHOLELITHIASIS [None]
